FAERS Safety Report 19649338 (Version 1)
Quarter: 2021Q3

REPORT INFORMATION
  Report Type: Report from Study
  Country: CA (occurrence: CA)
  Receive Date: 20210802
  Receipt Date: 20210802
  Transmission Date: 20211014
  Serious: Yes (Hospitalization, Other)
  Sender: FDA-Public Use
  Company Number: CA-PFIZER INC-202100917473

PATIENT
  Age: 78 Year
  Sex: Male
  Weight: 88 kg

DRUGS (24)
  1. PREDNISONE. [Concomitant]
     Active Substance: PREDNISONE
     Dosage: UNK
     Route: 065
  2. ESBRIET [Suspect]
     Active Substance: PIRFENIDONE
     Dosage: UNK
     Route: 048
  3. ESBRIET [Suspect]
     Active Substance: PIRFENIDONE
     Dosage: 801 MG, 3X/DAY
     Route: 048
  4. ESBRIET [Suspect]
     Active Substance: PIRFENIDONE
     Dosage: 534 MG, 3X/DAY
     Route: 048
  5. ACETAMINOPHEN. [Concomitant]
     Active Substance: ACETAMINOPHEN
  6. NYSTATIN. [Concomitant]
     Active Substance: NYSTATIN
  7. PANTOPRAZOLE [Concomitant]
     Active Substance: PANTOPRAZOLE
  8. ESBRIET [Suspect]
     Active Substance: PIRFENIDONE
     Indication: IDIOPATHIC PULMONARY FIBROSIS
     Dosage: 267 MG, 3X/DAY
     Route: 048
  9. FLUOROURACIL. [Concomitant]
     Active Substance: FLUOROURACIL
  10. RABEPRAZOLE [Concomitant]
     Active Substance: RABEPRAZOLE
  11. ESBRIET [Suspect]
     Active Substance: PIRFENIDONE
     Dosage: UNK, 3 EVERY 1 DAYS
     Route: 048
  12. SULFAMETHOXAZOLE/TRIMETHOPRIM [Concomitant]
     Active Substance: SULFAMETHOXAZOLE\TRIMETHOPRIM
  13. ESBRIET [Suspect]
     Active Substance: PIRFENIDONE
     Dosage: 534 MG, 3X/DAY
     Route: 048
  14. ESBRIET [Suspect]
     Active Substance: PIRFENIDONE
     Dosage: 267 MG, 3X/DAY
     Route: 048
  15. ESBRIET [Suspect]
     Active Substance: PIRFENIDONE
     Dosage: 801 MG, 3X/DAY
     Route: 048
  16. FERROUS FUMARATE [Concomitant]
     Active Substance: FERROUS FUMARATE
  17. HYDROMORPHONE [HYDROMORPHONE HYDROCHLORIDE] [Concomitant]
     Active Substance: HYDROMORPHONE HYDROCHLORIDE
  18. IRBESARTAN. [Concomitant]
     Active Substance: IRBESARTAN
     Route: 065
  19. ESBRIET [Suspect]
     Active Substance: PIRFENIDONE
     Dosage: 267 MG, 3X/DAY
     Route: 048
  20. RITUXIMAB. [Suspect]
     Active Substance: RITUXIMAB
     Indication: HODGKIN^S DISEASE
     Route: 065
  21. ESBRIET [Suspect]
     Active Substance: PIRFENIDONE
     Dosage: UNK, 3 EVERY 1 DAYS
     Route: 048
  22. ALLOPURINOL. [Concomitant]
     Active Substance: ALLOPURINOL
  23. ONDANSETRON [Concomitant]
     Active Substance: ONDANSETRON
  24. RIVAROXABAN [Concomitant]
     Active Substance: RIVAROXABAN
     Route: 065

REACTIONS (32)
  - Alanine aminotransferase increased [Recovered/Resolved]
  - Asthenia [Recovered/Resolved]
  - Interstitial lung disease [Recovered/Resolved]
  - Lethargy [Recovered/Resolved]
  - Lung consolidation [Recovered/Resolved]
  - Lymphoma [Recovered/Resolved]
  - Respiratory failure [Recovered/Resolved]
  - Back pain [Recovered/Resolved]
  - Headache [Recovered/Resolved]
  - Fatigue [Recovered/Resolved]
  - Hepatic steatosis [Recovered/Resolved]
  - Aortic aneurysm [Recovered/Resolved]
  - Blood lactate dehydrogenase increased [Recovered/Resolved]
  - Diverticulum [Recovered/Resolved]
  - Gastrointestinal disorder [Recovered/Resolved]
  - Pneumonitis [Recovered/Resolved]
  - Pulmonary artery dilatation [Recovered/Resolved]
  - Squamous cell carcinoma of skin [Recovered/Resolved]
  - Appetite disorder [Recovered/Resolved]
  - Diverticulum intestinal [Recovered/Resolved]
  - Dizziness [Recovered/Resolved]
  - Lymphadenopathy [Recovered/Resolved]
  - Second primary malignancy [Recovered/Resolved]
  - Computerised tomogram abnormal [Recovered/Resolved]
  - Fall [Recovered/Resolved]
  - Nausea [Recovered/Resolved]
  - Weight decreased [Recovered/Resolved]
  - Atrial fibrillation [Recovered/Resolved]
  - Dyspnoea [Recovered/Resolved]
  - Hypotension [Recovered/Resolved]
  - Orthostatic hypotension [Recovered/Resolved]
  - Neoplasm progression [Recovered/Resolved]
